FAERS Safety Report 5239475-7 (Version None)
Quarter: 2007Q1

REPORT INFORMATION
  Report Type: 
  Country: None (occurrence: None)
  Receive Date: 20070216
  Receipt Date: 20070208
  Transmission Date: 20070707
  Serious: Yes (Other)
  Sender: FDA-Public Use
  Company Number: 2007UW02645

PATIENT
  Sex: Female

DRUGS (1)
  1. ZOLADEX [Suspect]
     Indication: OVARIAN ATROPHY
     Route: 058

REACTIONS (2)
  - INJECTION SITE SWELLING [None]
  - MEDICATION ERROR [None]
